FAERS Safety Report 13767763 (Version 2)
Quarter: 2017Q4

REPORT INFORMATION
  Report Type: Spontaneous
  Country: CA (occurrence: CA)
  Receive Date: 20170719
  Receipt Date: 20171122
  Transmission Date: 20180320
  Serious: Yes (Hospitalization, Other)
  Sender: FDA-Public Use
  Company Number: CA-CONCORDIA PHARMACEUTICALS INC.-GSH201707-004179

PATIENT
  Age: 83 Year
  Sex: Female

DRUGS (38)
  1. VITAMIN D [Concomitant]
     Active Substance: CHOLECALCIFEROL
  2. ENBREL [Suspect]
     Active Substance: ETANERCEPT
     Indication: RHEUMATOID ARTHRITIS
     Route: 065
     Dates: start: 20080401, end: 20131001
  3. SULFASALAZINE. [Suspect]
     Active Substance: SULFASALAZINE
     Route: 048
  4. NASONEX [Concomitant]
     Active Substance: MOMETASONE FUROATE
  5. NORTRIPTYLINE HYDROCHLORIDE/PERPHENAZINE [Concomitant]
     Indication: SLEEP DISORDER
  6. ACTEMRA [Suspect]
     Active Substance: TOCILIZUMAB
     Indication: RHEUMATOID ARTHRITIS
     Route: 042
     Dates: start: 20131001, end: 20150303
  7. GABAPENTIN. [Suspect]
     Active Substance: GABAPENTIN
     Indication: PRODUCT USED FOR UNKNOWN INDICATION
     Route: 048
  8. OXYCONTIN [Suspect]
     Active Substance: OXYCODONE HYDROCHLORIDE
     Indication: PRODUCT USED FOR UNKNOWN INDICATION
     Route: 065
  9. PANTOPRAZOLE [Concomitant]
     Active Substance: PANTOPRAZOLE
  10. TYLENOL [Concomitant]
     Active Substance: ACETAMINOPHEN
  11. CALCIUM DPANTOTHENATE/ERGOCALCIFEROL/NICOTINAMIDE/PYRIDOXINE HYDROCHLORIDE/RIBOFLAVIN/THIAMINE HYDRO [Concomitant]
  12. PLAQUENIL [Suspect]
     Active Substance: HYDROXYCHLOROQUINE SULFATE
     Indication: RHEUMATOID ARTHRITIS
     Route: 048
     Dates: start: 20080101, end: 20080101
  13. FENTANYL. [Suspect]
     Active Substance: FENTANYL
     Indication: PRODUCT USED FOR UNKNOWN INDICATION
     Route: 065
  14. TRAZODONE HYDROCHLORIDE. [Concomitant]
     Active Substance: TRAZODONE HYDROCHLORIDE
  15. PANTOPRAZOLE MAGNESIUM [Concomitant]
     Active Substance: PANTOPRAZOLE MAGNESIUM
  16. METHOTREXATE SODIUM. [Suspect]
     Active Substance: METHOTREXATE SODIUM
     Route: 058
     Dates: start: 20110516, end: 20110913
  17. METHOTREXATE SODIUM. [Suspect]
     Active Substance: METHOTREXATE SODIUM
     Route: 058
  18. MYOCHRYSINE [Suspect]
     Active Substance: GOLD SODIUM THIOMALATE
     Route: 030
  19. ORENCIA [Suspect]
     Active Substance: ABATACEPT
     Indication: RHEUMATOID ARTHRITIS
     Route: 042
     Dates: start: 20150331, end: 20160223
  20. SULFASALAZINE. [Suspect]
     Active Substance: SULFASALAZINE
     Indication: RHEUMATOID ARTHRITIS
     Route: 048
     Dates: start: 20040401, end: 20080101
  21. DIPHENOXYLATE HYDROCHLORIDE [Concomitant]
     Active Substance: DIPHENOXYLATE HYDROCHLORIDE
  22. ERGOCALCIFEROL. [Concomitant]
     Active Substance: ERGOCALCIFEROL
  23. FERROUS GLUCONATE [Concomitant]
     Active Substance: FERROUS GLUCONATE
  24. PREDNISONE. [Concomitant]
     Active Substance: PREDNISONE
  25. PLAQUENIL [Suspect]
     Active Substance: HYDROXYCHLOROQUINE SULFATE
     Route: 048
  26. CELEBREX [Suspect]
     Active Substance: CELECOXIB
     Indication: ARTHRITIS
     Route: 048
  27. ACETAMINOPHEN W/OXYCODONE [Concomitant]
     Active Substance: ACETAMINOPHEN\OXYCODONE HYDROCHLORIDE
     Indication: PAIN
  28. METHOTREXATE SODIUM. [Suspect]
     Active Substance: METHOTREXATE SODIUM
     Indication: RHEUMATOID ARTHRITIS
     Dosage: 7.5-12.5 MG
     Route: 058
     Dates: end: 20110913
  29. ACLASTA [Concomitant]
     Active Substance: ZOLEDRONIC ACID
  30. ACTONEL [Concomitant]
     Active Substance: RISEDRONATE SODIUM
  31. ESOMEPRAZOLE [Concomitant]
     Active Substance: ESOMEPRAZOLE
  32. D-ALPHA TOCOPHEROL/ FISH OIL [Concomitant]
  33. ACTEMRA [Suspect]
     Active Substance: TOCILIZUMAB
     Route: 042
  34. ENBREL [Suspect]
     Active Substance: ETANERCEPT
  35. MYOCHRYSINE [Suspect]
     Active Substance: GOLD SODIUM THIOMALATE
     Indication: RHEUMATOID ARTHRITIS
     Route: 030
     Dates: start: 20060501, end: 20080201
  36. CALCIUM [Concomitant]
     Active Substance: CALCIUM
  37. LOPERAMIDE HYDROCHLORIDE. [Concomitant]
     Active Substance: LOPERAMIDE HYDROCHLORIDE
  38. BIOTIN/CALCIUM D-PANTOTHENATE/D-ALPHATOCOPHERYLACETATE/NICOTINAMIDE/PYRIDOXINE/HYDROCHLORIDE/RETINOL [Concomitant]

REACTIONS (21)
  - Deafness neurosensory [Unknown]
  - Sleep disorder [Unknown]
  - Infection [Unknown]
  - Nausea [Unknown]
  - Dry eye [Unknown]
  - Osteoarthritis [Unknown]
  - Skin lesion [Unknown]
  - Hospitalisation [Unknown]
  - Blood creatinine increased [Unknown]
  - Cyst [Unknown]
  - Fatigue [Unknown]
  - Drug intolerance [Unknown]
  - Pleural fibrosis [Unknown]
  - Presbyacusis [Unknown]
  - Renal impairment [Unknown]
  - Diarrhoea [Unknown]
  - Drug ineffective [Unknown]
  - Epigastric discomfort [Unknown]
  - Gastrointestinal disorder [Unknown]
  - Osteopenia [Unknown]
  - Treatment failure [Unknown]
